FAERS Safety Report 15947387 (Version 1)
Quarter: 2019Q1

REPORT INFORMATION
  Report Type: Spontaneous
  Country: FR (occurrence: FR)
  Receive Date: 20190212
  Receipt Date: 20190212
  Transmission Date: 20190417
  Serious: Yes (Hospitalization)
  Sender: FDA-Public Use
  Company Number: FR-GLAXOSMITHKLINE-FR2019021526

PATIENT
  Age: 65 Year
  Sex: Male
  Weight: 75 kg

DRUGS (1)
  1. ROPINIROLE. [Suspect]
     Active Substance: ROPINIROLE
     Indication: TREMOR
     Dosage: 1 DF, QD
     Route: 048
     Dates: end: 20180219

REACTIONS (1)
  - Chest pain [Recovered/Resolved]

NARRATIVE: CASE EVENT DATE: 20180219
